FAERS Safety Report 20435899 (Version 3)
Quarter: 2022Q1

REPORT INFORMATION
  Report Type: Spontaneous
  Country: US (occurrence: US)
  Receive Date: 20220207
  Receipt Date: 20220310
  Transmission Date: 20220423
  Serious: Yes (Other)
  Sender: FDA-Public Use
  Company Number: US-JNJFOC-20220204932

PATIENT
  Age: 5 Decade
  Sex: Female

DRUGS (19)
  1. ELMIRON [Suspect]
     Active Substance: PENTOSAN POLYSULFATE SODIUM
     Indication: Cystitis interstitial
     Route: 048
     Dates: start: 2008, end: 2019
  2. ELMIRON [Suspect]
     Active Substance: PENTOSAN POLYSULFATE SODIUM
     Route: 048
     Dates: start: 20091117, end: 20120124
  3. ELMIRON [Suspect]
     Active Substance: PENTOSAN POLYSULFATE SODIUM
     Route: 048
     Dates: start: 20100727, end: 20181220
  4. AMLODIPINE BESYLATE [Concomitant]
     Active Substance: AMLODIPINE BESYLATE
     Dates: start: 20170407
  5. CLONIDINE HYDROCHLORIDE [Concomitant]
     Active Substance: CLONIDINE HYDROCHLORIDE
     Dates: start: 20190219
  6. COLESTIPOL [Concomitant]
     Active Substance: COLESTIPOL
     Dates: start: 20190416, end: 20191113
  7. DOXYCYCLINE HYCLATE [Concomitant]
     Active Substance: DOXYCYCLINE HYCLATE
     Dates: start: 20180405, end: 20201012
  8. DIAZEPAM [Concomitant]
     Active Substance: DIAZEPAM
     Dates: start: 20150514, end: 20181107
  9. ESOMEPRAZOLE MAGNESIUM [Concomitant]
     Active Substance: ESOMEPRAZOLE MAGNESIUM
     Dates: start: 20170214, end: 20190130
  10. ESTRACE [Concomitant]
     Active Substance: ESTRADIOL
     Dosage: CREAM
     Dates: start: 20180822, end: 20190121
  11. FENTANYL [Concomitant]
     Active Substance: FENTANYL
     Dates: start: 20150603, end: 20220129
  12. FENTANYL CITRATE [Concomitant]
     Active Substance: FENTANYL CITRATE
     Dates: start: 20150204, end: 20190216
  13. LYRICA [Concomitant]
     Active Substance: PREGABALIN
     Dates: start: 20150122, end: 20190807
  14. NITROFURANTOIN [Concomitant]
     Active Substance: NITROFURANTOIN
     Dates: start: 20150126, end: 20191009
  15. OMEPRAZOLE [Concomitant]
     Active Substance: OMEPRAZOLE
     Dates: start: 20150126
  16. PREGABALIN [Concomitant]
     Active Substance: PREGABALIN
     Dates: start: 20190810, end: 20211201
  17. SIMVASTATIN [Concomitant]
     Active Substance: SIMVASTATIN
     Dates: start: 20150126
  18. ZOLMITRIPTAN [Concomitant]
     Active Substance: ZOLMITRIPTAN
     Dates: start: 20191009, end: 20210224
  19. ZOLPIDEM TARTRATE [Concomitant]
     Active Substance: ZOLPIDEM TARTRATE
     Dates: start: 20150202, end: 20211223

REACTIONS (5)
  - Dry age-related macular degeneration [Not Recovered/Not Resolved]
  - Retinal dystrophy [Not Recovered/Not Resolved]
  - Retinal pigmentation [Unknown]
  - Off label use [Unknown]
  - Product use issue [Unknown]

NARRATIVE: CASE EVENT DATE: 20080101
